FAERS Safety Report 11062712 (Version 3)
Quarter: 2015Q2

REPORT INFORMATION
  Report Type: Spontaneous
  Country: US (occurrence: US)
  Receive Date: 20150424
  Receipt Date: 20150618
  Transmission Date: 20150821
  Serious: Yes (Death, Hospitalization)
  Sender: FDA-Public Use
  Company Number: US-PFIZER INC-2015137415

PATIENT
  Age: 78 Year
  Sex: Male
  Weight: 105 kg

DRUGS (12)
  1. BISOPROLOL FUMARATE. [Concomitant]
     Active Substance: BISOPROLOL FUMARATE
     Dosage: 2.5 MG, 1X/DAY
  2. SIMVASTATIN. [Concomitant]
     Active Substance: SIMVASTATIN
     Dosage: 20 MG, 1X/DAY
  3. TRAMADOL HCL [Concomitant]
     Active Substance: TRAMADOL HYDROCHLORIDE
     Dosage: 50 MG, UNK
  4. ZYRTEC [Concomitant]
     Active Substance: CETIRIZINE HYDROCHLORIDE
     Dosage: UNK
  5. AMINOCAPROIC ACID. [Concomitant]
     Active Substance: AMINOCAPROIC ACID
     Dosage: 500 MG, 4X/DAY
  6. MAGNESIUM + PROTEIN COMPLEX [Concomitant]
     Dosage: 133 MG, 2X/DAY
     Dates: start: 201503
  7. VFEND [Suspect]
     Active Substance: VORICONAZOLE
     Dosage: 200 MG, 2X/DAY
     Route: 048
     Dates: start: 201503
  8. VFEND [Suspect]
     Active Substance: VORICONAZOLE
     Indication: BACTERIAL INFECTION
     Dosage: 100 MG, 2X/DAY
     Route: 048
     Dates: start: 201503
  9. CEFPODOXIME [Concomitant]
     Active Substance: CEFPODOXIME
     Dosage: 200 MG, 2X/DAY
     Dates: start: 201503
  10. ACETAMINOPHEN/COD [Concomitant]
     Dosage: UNK
  11. NEURONTIN [Concomitant]
     Active Substance: GABAPENTIN
     Dosage: 300 MG, UNK (2 TIMES)
     Dates: start: 201503
  12. DOXAZOSIN MESILATE [Concomitant]
     Active Substance: DOXAZOSIN MESYLATE
     Dosage: 4 MG, 1X/DAY

REACTIONS (3)
  - Cerebral haemorrhage [Fatal]
  - Condition aggravated [Fatal]
  - Myelodysplastic syndrome [Fatal]

NARRATIVE: CASE EVENT DATE: 20150415
